FAERS Safety Report 18639604 (Version 1)
Quarter: 2020Q4

REPORT INFORMATION
  Report Type: Other
  Country: US (occurrence: US)
  Receive Date: 20201220
  Receipt Date: 20201220
  Transmission Date: 20210114
  Serious: Yes (Other)
  Sender: FDA-Public Use
  Company Number: US-STANDARD HOMEOPATHIC COMPANY-2103222

PATIENT
  Age: 70 Year
  Sex: Female

DRUGS (2)
  1. HYLAND^S LEG CRAMPS OINTMENT [Suspect]
     Active Substance: HOMEOPATHICS
     Indication: PAIN IN EXTREMITY
     Route: 061
     Dates: start: 20191101, end: 20201204
  2. HYLAND^S LEG CRAMPS OINTMENT [Suspect]
     Active Substance: HOMEOPATHICS
     Indication: MUSCLE SPASMS
     Route: 061
     Dates: start: 20191101, end: 20201204

REACTIONS (1)
  - Breast cancer [Unknown]

NARRATIVE: CASE EVENT DATE: 20191101
